FAERS Safety Report 9871053 (Version 1)
Quarter: 2014Q1

REPORT INFORMATION
  Report Type: Spontaneous
  Country: US (occurrence: None)
  Receive Date: 20140204
  Receipt Date: 20140204
  Transmission Date: 20141002
  Serious: Yes (Hospitalization)
  Sender: FDA-Public Use
  Company Number: None

PATIENT
  Age: 11 Year
  Sex: Female
  Weight: 40.4 kg

DRUGS (4)
  1. DAUNORUBICIN [Suspect]
     Dates: end: 20131204
  2. METHOTREXATE [Suspect]
     Dates: end: 20131226
  3. PREDNISONE [Suspect]
     Dates: end: 20131126
  4. VINCRISTINE SULFATE [Suspect]
     Dates: end: 20131218

REACTIONS (9)
  - Renal failure acute [None]
  - Hepatic failure [None]
  - Tumour lysis syndrome [None]
  - Stomatitis [None]
  - Dermatitis bullous [None]
  - Respiratory distress [None]
  - Ulcer haemorrhage [None]
  - Pancreatitis [None]
  - Dialysis [None]
